FAERS Safety Report 8357489-5 (Version None)
Quarter: 2012Q2

REPORT INFORMATION
  Report Type: 
  Country: None (occurrence: None)
  Receive Date: 20120514
  Receipt Date: 20120509
  Transmission Date: 20120825
  Serious: Yes (Hospitalization, Congenital Anomaly, Other)
  Sender: FDA-Public Use
  Company Number: US-FRI-1000029169

PATIENT
  Sex: Male
  Weight: 3.1 kg

DRUGS (4)
  1. ESGIC-PLUS [Concomitant]
  2. PROZAC [Concomitant]
  3. NATACHEW [Concomitant]
  4. LEXAPRO [Suspect]
     Route: 064

REACTIONS (4)
  - TRANSPOSITION OF THE GREAT VESSELS [None]
  - PYLORIC STENOSIS [None]
  - CEREBRAL HAEMORRHAGE NEONATAL [None]
  - FOETAL EXPOSURE DURING PREGNANCY [None]
